FAERS Safety Report 5717569-7 (Version None)
Quarter: 2008Q2

REPORT INFORMATION
  Report Type: 
  Country: None (occurrence: None)
  Receive Date: 20080425
  Receipt Date: 20080425
  Transmission Date: 20081010
  Serious: Yes (Other)
  Sender: FDA-Public Use
  Company Number: None

PATIENT
  Age: 39 Year
  Sex: Female
  Weight: 86.1834 kg

DRUGS (1)
  1. HEPARIN SODIUM [Suspect]
     Indication: PREGNANCY TEST POSITIVE
     Dosage: 5000 UNITS BID SQ
     Route: 058

REACTIONS (6)
  - ABDOMINAL PAIN [None]
  - DRUG HYPERSENSITIVITY [None]
  - INJECTION SITE ERYTHEMA [None]
  - INJECTION SITE PRURITUS [None]
  - INJECTION SITE SWELLING [None]
  - PHARMACEUTICAL PRODUCT COMPLAINT [None]
